FAERS Safety Report 10146546 (Version 2)
Quarter: 2014Q2

REPORT INFORMATION
  Report Type: Spontaneous
  Country: IT (occurrence: IT)
  Receive Date: 20140501
  Receipt Date: 20140610
  Transmission Date: 20141212
  Serious: Yes (Other)
  Sender: FDA-Public Use
  Company Number: IT-ACTAVIS-2014-08577

PATIENT
  Age: 54 Year
  Sex: Male

DRUGS (2)
  1. CLOPIDOGREL ACTAVIS [Suspect]
     Indication: CAROTID ARTERY OCCLUSION
     Dosage: 1 DF, DAILY
     Route: 048
     Dates: end: 20140512
  2. CLOPIDOGREL ACTAVIS [Suspect]
     Indication: CAROTID ARTERY DISEASE

REACTIONS (4)
  - Bronchitis [Not Recovered/Not Resolved]
  - Cough [Not Recovered/Not Resolved]
  - Rhinitis [Not Recovered/Not Resolved]
  - Myalgia [Recovering/Resolving]
